FAERS Safety Report 4902032-3 (Version None)
Quarter: 2006Q1

REPORT INFORMATION
  Report Type: 
  Country: None (occurrence: None)
  Receive Date: 20060202
  Receipt Date: 20060123
  Transmission Date: 20060701
  Serious: Yes (Other)
  Sender: FDA-Public Use
  Company Number: 230370K06USA

PATIENT
  Age: 49 Year
  Sex: Female

DRUGS (4)
  1. REBIF [Suspect]
     Indication: MULTIPLE SCLEROSIS
     Dosage: 44 MCG, 3 IN 1 WEEKS, SUBCUTANEOUS
     Route: 058
     Dates: start: 20040805
  2. LEVOXYL [Concomitant]
  3. LEXAPRO [Concomitant]
  4. DITROPAN [Concomitant]

REACTIONS (2)
  - GRAND MAL CONVULSION [None]
  - URINARY TRACT INFECTION [None]
